FAERS Safety Report 17405291 (Version 1)
Quarter: 2020Q1

REPORT INFORMATION
  Report Type: Report from Study
  Country: ES (occurrence: ES)
  Receive Date: 20200212
  Receipt Date: 20200212
  Transmission Date: 20200409
  Serious: Yes (Hospitalization)
  Sender: FDA-Public Use
  Company Number: ES-TEVA-2020-ES-1183655

PATIENT
  Age: 72 Year
  Sex: Female

DRUGS (6)
  1. CARVEDILOL (2431A) [Concomitant]
     Active Substance: CARVEDILOL
     Dosage: 6.25MG
     Route: 048
     Dates: start: 20130122
  2. ALDOCUMAR 1 MG COMPRIMIDOS, 40 COMPRIMIDOS [Interacting]
     Active Substance: WARFARIN SODIUM
     Indication: ATRIAL FIBRILLATION
     Route: 048
     Dates: start: 2004
  3. ESPIRONOLACTONA (326A) [Concomitant]
     Active Substance: SPIRONOLACTONE
     Dosage: 25MG
     Route: 048
     Dates: start: 20180710
  4. FUROSEMIDA (1615A) [Concomitant]
     Active Substance: FUROSEMIDE
     Dosage: 40MG
     Route: 048
     Dates: start: 201307
  5. TRAMADOL HIDROCLORURO (2389CH) [Suspect]
     Active Substance: TRAMADOL
     Indication: ARTHRALGIA
     Dosage: 300MG
     Route: 048
     Dates: start: 20190821, end: 20190828
  6. PARACETAMOL (12A) [Concomitant]
     Active Substance: ACETAMINOPHEN
     Indication: ARTHRALGIA
     Dosage: 3 GRAM
     Route: 048
     Dates: start: 20190821

REACTIONS (2)
  - Haematoma muscle [Recovered/Resolved]
  - Drug interaction [Unknown]

NARRATIVE: CASE EVENT DATE: 20190828
